FAERS Safety Report 12503179 (Version 2)
Quarter: 2016Q3

REPORT INFORMATION
  Report Type: Report from Study
  Country: CH (occurrence: CH)
  Receive Date: 20160628
  Receipt Date: 20160704
  Transmission Date: 20161109
  Serious: Yes (Hospitalization, Other)
  Sender: FDA-Public Use
  Company Number: CH-BRISTOL-MYERS SQUIBB COMPANY-BMS-2016-035765

PATIENT
  Sex: Female

DRUGS (1)
  1. ABATACEPT [Suspect]
     Active Substance: ABATACEPT
     Indication: RHEUMATOID ARTHRITIS
     Dosage: 125 MG, QWK
     Route: 058
     Dates: start: 20150514

REACTIONS (4)
  - Groin pain [Recovered/Resolved]
  - Femur fracture [Unknown]
  - Hip arthroplasty [Unknown]
  - Osteosynthesis [Unknown]

NARRATIVE: CASE EVENT DATE: 20160502
